FAERS Safety Report 25348436 (Version 1)
Quarter: 2025Q2

REPORT INFORMATION
  Report Type: Report from Study
  Country: ES (occurrence: ES)
  Receive Date: 20250522
  Receipt Date: 20250522
  Transmission Date: 20250716
  Serious: Yes (Hospitalization, Other)
  Sender: MYLAN
  Company Number: None

PATIENT
  Age: 83 Year
  Sex: Female

DRUGS (44)
  1. SERTRALINE HYDROCHLORIDE [Suspect]
     Active Substance: SERTRALINE HYDROCHLORIDE
     Indication: Product used for unknown indication
     Dosage: 50 MILLIGRAM, QD (1 TABLET / 24 H, POOR ADHERENCE)
     Dates: start: 20250117, end: 20250414
  2. SERTRALINE HYDROCHLORIDE [Suspect]
     Active Substance: SERTRALINE HYDROCHLORIDE
     Dosage: 50 MILLIGRAM, QD (1 TABLET / 24 H, POOR ADHERENCE)
     Route: 048
     Dates: start: 20250117, end: 20250414
  3. SERTRALINE HYDROCHLORIDE [Suspect]
     Active Substance: SERTRALINE HYDROCHLORIDE
     Dosage: 50 MILLIGRAM, QD (1 TABLET / 24 H, POOR ADHERENCE)
     Route: 048
     Dates: start: 20250117, end: 20250414
  4. SERTRALINE HYDROCHLORIDE [Suspect]
     Active Substance: SERTRALINE HYDROCHLORIDE
     Dosage: 50 MILLIGRAM, QD (1 TABLET / 24 H, POOR ADHERENCE)
     Dates: start: 20250117, end: 20250414
  5. INDAPAMIDE [Suspect]
     Active Substance: INDAPAMIDE
     Indication: Hypertension
     Dosage: 1.5 MILLIGRAM, QD (1 TABLET / 24 H - ACCORDING TO TENSION)
     Dates: start: 20150110, end: 20250414
  6. INDAPAMIDE [Suspect]
     Active Substance: INDAPAMIDE
     Dosage: 1.5 MILLIGRAM, QD (1 TABLET / 24 H - ACCORDING TO TENSION)
     Route: 048
     Dates: start: 20150110, end: 20250414
  7. INDAPAMIDE [Suspect]
     Active Substance: INDAPAMIDE
     Dosage: 1.5 MILLIGRAM, QD (1 TABLET / 24 H - ACCORDING TO TENSION)
     Route: 048
     Dates: start: 20150110, end: 20250414
  8. INDAPAMIDE [Suspect]
     Active Substance: INDAPAMIDE
     Dosage: 1.5 MILLIGRAM, QD (1 TABLET / 24 H - ACCORDING TO TENSION)
     Dates: start: 20150110, end: 20250414
  9. MIRTAZAPINE [Suspect]
     Active Substance: MIRTAZAPINE
     Indication: Product used for unknown indication
     Dosage: 7.5 MILLIGRAM, QD (0.5 TABLET / 24 H, POOR ADHERENCE)
     Dates: start: 20250220, end: 20250414
  10. MIRTAZAPINE [Suspect]
     Active Substance: MIRTAZAPINE
     Dosage: 7.5 MILLIGRAM, QD (0.5 TABLET / 24 H, POOR ADHERENCE)
     Route: 048
     Dates: start: 20250220, end: 20250414
  11. MIRTAZAPINE [Suspect]
     Active Substance: MIRTAZAPINE
     Dosage: 7.5 MILLIGRAM, QD (0.5 TABLET / 24 H, POOR ADHERENCE)
     Route: 048
     Dates: start: 20250220, end: 20250414
  12. MIRTAZAPINE [Suspect]
     Active Substance: MIRTAZAPINE
     Dosage: 7.5 MILLIGRAM, QD (0.5 TABLET / 24 H, POOR ADHERENCE)
     Dates: start: 20250220, end: 20250414
  13. PREGABALIN [Suspect]
     Active Substance: PREGABALIN
     Indication: Product used for unknown indication
     Dosage: 1 DOSAGE FORM, BID (1 CAPSULE / 12 H)
     Dates: start: 20241218, end: 20250416
  14. PREGABALIN [Suspect]
     Active Substance: PREGABALIN
     Dosage: 1 DOSAGE FORM, BID (1 CAPSULE / 12 H)
     Route: 048
     Dates: start: 20241218, end: 20250416
  15. PREGABALIN [Suspect]
     Active Substance: PREGABALIN
     Dosage: 1 DOSAGE FORM, BID (1 CAPSULE / 12 H)
     Route: 048
     Dates: start: 20241218, end: 20250416
  16. PREGABALIN [Suspect]
     Active Substance: PREGABALIN
     Dosage: 1 DOSAGE FORM, BID (1 CAPSULE / 12 H)
     Dates: start: 20241218, end: 20250416
  17. LEVOFLOXACIN [Concomitant]
     Active Substance: LEVOFLOXACIN
     Indication: Urinary tract infection
     Dosage: 500 MILLIGRAM, BID (1 TABLET / 12 H)
     Dates: start: 20250409, end: 20250416
  18. LEVOFLOXACIN [Concomitant]
     Active Substance: LEVOFLOXACIN
     Dosage: 500 MILLIGRAM, BID (1 TABLET / 12 H)
     Route: 048
     Dates: start: 20250409, end: 20250416
  19. LEVOFLOXACIN [Concomitant]
     Active Substance: LEVOFLOXACIN
     Dosage: 500 MILLIGRAM, BID (1 TABLET / 12 H)
     Route: 048
     Dates: start: 20250409, end: 20250416
  20. LEVOFLOXACIN [Concomitant]
     Active Substance: LEVOFLOXACIN
     Dosage: 500 MILLIGRAM, BID (1 TABLET / 12 H)
     Dates: start: 20250409, end: 20250416
  21. METOCLOPRAMIDE HYDROCHLORIDE [Concomitant]
     Active Substance: METOCLOPRAMIDE HYDROCHLORIDE
     Dosage: 1 DOSAGE FORM, Q8H (1 TABLET / 8 H)
     Dates: start: 20250407, end: 20250416
  22. METOCLOPRAMIDE HYDROCHLORIDE [Concomitant]
     Active Substance: METOCLOPRAMIDE HYDROCHLORIDE
     Dosage: 1 DOSAGE FORM, Q8H (1 TABLET / 8 H)
     Route: 048
     Dates: start: 20250407, end: 20250416
  23. METOCLOPRAMIDE HYDROCHLORIDE [Concomitant]
     Active Substance: METOCLOPRAMIDE HYDROCHLORIDE
     Dosage: 1 DOSAGE FORM, Q8H (1 TABLET / 8 H)
     Route: 048
     Dates: start: 20250407, end: 20250416
  24. METOCLOPRAMIDE HYDROCHLORIDE [Concomitant]
     Active Substance: METOCLOPRAMIDE HYDROCHLORIDE
     Dosage: 1 DOSAGE FORM, Q8H (1 TABLET / 8 H)
     Dates: start: 20250407, end: 20250416
  25. BROMAZEPAM [Concomitant]
     Active Substance: BROMAZEPAM
     Indication: Insomnia
     Dosage: 1 DOSAGE FORM, QD (1 CAPSULE / 24 H, IF INSOMNIA)
     Dates: start: 20240221, end: 20250501
  26. BROMAZEPAM [Concomitant]
     Active Substance: BROMAZEPAM
     Dosage: 1 DOSAGE FORM, QD (1 CAPSULE / 24 H, IF INSOMNIA)
     Route: 048
     Dates: start: 20240221, end: 20250501
  27. BROMAZEPAM [Concomitant]
     Active Substance: BROMAZEPAM
     Dosage: 1 DOSAGE FORM, QD (1 CAPSULE / 24 H, IF INSOMNIA)
     Route: 048
     Dates: start: 20240221, end: 20250501
  28. BROMAZEPAM [Concomitant]
     Active Substance: BROMAZEPAM
     Dosage: 1 DOSAGE FORM, QD (1 CAPSULE / 24 H, IF INSOMNIA)
     Dates: start: 20240221, end: 20250501
  29. DUPHALAC [Concomitant]
     Active Substance: LACTULOSE
     Dosage: 1 DOSAGE FORM, Q8H (1 SACHET/8 HOUR)
     Dates: start: 20250324
  30. DUPHALAC [Concomitant]
     Active Substance: LACTULOSE
     Dosage: 1 DOSAGE FORM, Q8H (1 SACHET/8 HOUR)
     Route: 048
     Dates: start: 20250324
  31. DUPHALAC [Concomitant]
     Active Substance: LACTULOSE
     Dosage: 1 DOSAGE FORM, Q8H (1 SACHET/8 HOUR)
     Route: 048
     Dates: start: 20250324
  32. DUPHALAC [Concomitant]
     Active Substance: LACTULOSE
     Dosage: 1 DOSAGE FORM, Q8H (1 SACHET/8 HOUR)
     Dates: start: 20250324
  33. FAMOTIDINE [Concomitant]
     Active Substance: FAMOTIDINE
     Dosage: 20 MILLIGRAM, QD (1 TABLET/24 H)
     Dates: start: 20220618
  34. FAMOTIDINE [Concomitant]
     Active Substance: FAMOTIDINE
     Dosage: 20 MILLIGRAM, QD (1 TABLET/24 H)
     Route: 048
     Dates: start: 20220618
  35. FAMOTIDINE [Concomitant]
     Active Substance: FAMOTIDINE
     Dosage: 20 MILLIGRAM, QD (1 TABLET/24 H)
     Route: 048
     Dates: start: 20220618
  36. FAMOTIDINE [Concomitant]
     Active Substance: FAMOTIDINE
     Dosage: 20 MILLIGRAM, QD (1 TABLET/24 H)
     Dates: start: 20220618
  37. Solifenacina [Concomitant]
     Dosage: 5 MILLIGRAM, QD (1 TABLET/24 H)
     Dates: start: 20241219
  38. Solifenacina [Concomitant]
     Dosage: 5 MILLIGRAM, QD (1 TABLET/24 H)
     Route: 048
     Dates: start: 20241219
  39. Solifenacina [Concomitant]
     Dosage: 5 MILLIGRAM, QD (1 TABLET/24 H)
     Route: 048
     Dates: start: 20241219
  40. Solifenacina [Concomitant]
     Dosage: 5 MILLIGRAM, QD (1 TABLET/24 H)
     Dates: start: 20241219
  41. TAMSULOSIN HYDROCHLORIDE [Concomitant]
     Active Substance: TAMSULOSIN HYDROCHLORIDE
     Indication: Urinary retention
     Dosage: 1 DOSAGE FORM, QD (1 TABLET/24 H)
     Dates: start: 20241211
  42. TAMSULOSIN HYDROCHLORIDE [Concomitant]
     Active Substance: TAMSULOSIN HYDROCHLORIDE
     Dosage: 1 DOSAGE FORM, QD (1 TABLET/24 H)
     Route: 048
     Dates: start: 20241211
  43. TAMSULOSIN HYDROCHLORIDE [Concomitant]
     Active Substance: TAMSULOSIN HYDROCHLORIDE
     Dosage: 1 DOSAGE FORM, QD (1 TABLET/24 H)
     Route: 048
     Dates: start: 20241211
  44. TAMSULOSIN HYDROCHLORIDE [Concomitant]
     Active Substance: TAMSULOSIN HYDROCHLORIDE
     Dosage: 1 DOSAGE FORM, QD (1 TABLET/24 H)
     Dates: start: 20241211

REACTIONS (2)
  - Hyponatraemia [Recovered/Resolved]
  - Hypokalaemia [Recovered/Resolved]

NARRATIVE: CASE EVENT DATE: 20250414
